FAERS Safety Report 7101474-8 (Version None)
Quarter: 2010Q4

REPORT INFORMATION
  Report Type: 
  Country: None (occurrence: None)
  Receive Date: 20101115
  Receipt Date: 20101103
  Transmission Date: 20110411
  Serious: Yes (Hospitalization)
  Sender: FDA-Public Use
  Company Number: PHFR2010GB02262

PATIENT
  Sex: Female

DRUGS (10)
  1. CLOZARIL [Suspect]
     Dosage: 350 MG, UNK
     Route: 048
     Dates: start: 20090601
  2. CITALOPRAM [Concomitant]
     Dosage: 40 MG, UNK
     Route: 048
  3. DOCUSATE SODIUM [Concomitant]
     Dosage: 400 MG, UNK
  4. METFORMIN HCL [Concomitant]
     Dosage: 1500 MG, UNK
     Route: 048
  5. OMEPRAZOLE [Concomitant]
     Dosage: 40 MG, UNK
     Route: 048
  6. ORLISTAT [Concomitant]
     Dosage: 360 MG, UNK
     Route: 048
  7. SALBUTAMOL [Concomitant]
     Dosage: 2 DF, UNK
  8. SYMBICORT [Concomitant]
     Dosage: 2 DF, UNK
  9. SENNA [Concomitant]
     Dosage: 2 DF, UNK
     Route: 048
  10. PIRENZEPINE [Concomitant]
     Dosage: 25 MG, BID
     Route: 048

REACTIONS (2)
  - LOWER RESPIRATORY TRACT INFECTION [None]
  - RESPIRATORY FAILURE [None]
